FAERS Safety Report 15713978 (Version 2)
Quarter: 2019Q4

REPORT INFORMATION
  Report Type: Spontaneous
  Country: US (occurrence: US)
  Receive Date: 20181212
  Receipt Date: 20191213
  Transmission Date: 20200122
  Serious: No
  Sender: FDA-Public Use
  Company Number: US-ENDO PHARMACEUTICALS INC-2018-041312

PATIENT
  Age: 30 Year
  Sex: Male

DRUGS (2)
  1. TESTIM [Suspect]
     Active Substance: TESTOSTERONE
     Indication: PRODUCT USED FOR UNKNOWN INDICATION
     Dosage: UNK UNKNOWN, UNKNOWN
     Route: 062
     Dates: start: 201809, end: 201809
  2. TESTIM [Suspect]
     Active Substance: TESTOSTERONE
     Dosage: UNK UNKNOWN, UNKNOWN
     Route: 062

REACTIONS (8)
  - Dysphemia [Unknown]
  - Product quality issue [Unknown]
  - Asthenia [Unknown]
  - Physical product label issue [Unknown]
  - Depression [Unknown]
  - Drug ineffective [Unknown]
  - Anxiety [Unknown]
  - Pollakiuria [Unknown]

NARRATIVE: CASE EVENT DATE: 201809
